FAERS Safety Report 4838260-5 (Version None)
Quarter: 2005Q4

REPORT INFORMATION
  Report Type: 
  Country: None (occurrence: None)
  Receive Date: 20051128
  Receipt Date: 20051117
  Transmission Date: 20060501
  Serious: Yes (Hospitalization)
  Sender: FDA-Public Use
  Company Number: NO-MERCK-0511NOR00027

PATIENT
  Age: 75 Year
  Sex: Female

DRUGS (11)
  1. VIOXX [Suspect]
     Indication: OSTEOARTHRITIS
     Route: 048
     Dates: start: 20010401, end: 20040201
  2. VIOXX [Suspect]
     Route: 048
     Dates: start: 20040201, end: 20041001
  3. FOSAMAX [Concomitant]
     Indication: OSTEOPOROSIS
     Route: 048
  4. FOSAMAX [Concomitant]
     Route: 065
  5. CALCIUM (UNSPECIFIED) [Concomitant]
     Route: 065
  6. TIMOPTIC [Concomitant]
     Route: 047
  7. LATANOPROST [Concomitant]
     Route: 047
  8. INDOMETHACIN [Concomitant]
     Indication: OSTEOARTHRITIS
     Route: 054
     Dates: start: 20010701, end: 20010701
  9. NAPROXEN [Concomitant]
     Indication: OSTEOARTHRITIS
     Route: 048
     Dates: start: 20010701, end: 20010701
  10. IBUPROFEN [Concomitant]
     Indication: OSTEOARTHRITIS
     Route: 048
  11. ACETAMINOPHEN [Concomitant]
     Indication: OSTEOARTHRITIS
     Route: 048

REACTIONS (7)
  - ANEURYSM [None]
  - CEREBRAL HAEMORRHAGE [None]
  - CEREBRAL ISCHAEMIA [None]
  - GASTROINTESTINAL HAEMORRHAGE [None]
  - HEPATIC HAEMORRHAGE [None]
  - HYDROCEPHALUS [None]
  - LIVER DISORDER [None]
